FAERS Safety Report 5670679-5 (Version None)
Quarter: 2008Q1

REPORT INFORMATION
  Report Type: 
  Country: None (occurrence: None)
  Receive Date: 20080313
  Receipt Date: 20080310
  Transmission Date: 20080703
  Serious: Yes (Hospitalization)
  Sender: FDA-Public Use
  Company Number: 2008SP004879

PATIENT
  Age: 82 Year
  Sex: Male

DRUGS (1)
  1. TEMODAR [Suspect]
     Indication: ACUTE MYELOID LEUKAEMIA
     Dosage: 200 MG; QD; PO
     Route: 048
     Dates: start: 20080209, end: 20080227

REACTIONS (1)
  - FEBRILE NEUTROPENIA [None]
